FAERS Safety Report 9364505 (Version 1)
Quarter: 2013Q2

REPORT INFORMATION
  Report Type: Spontaneous
  Country: FR (occurrence: FR)
  Receive Date: 20130624
  Receipt Date: 20130624
  Transmission Date: 20140414
  Serious: Yes (Hospitalization, Other)
  Sender: FDA-Public Use
  Company Number: FR-INCYTE CORPORATION-2013IN001267

PATIENT
  Age: 84 Year
  Sex: Male

DRUGS (2)
  1. JAKAVI [Suspect]
     Indication: MYELOFIBROSIS
     Dosage: 15 OR 20 MG BID
     Route: 048
  2. JAKAVI [Suspect]
     Dosage: 5 MG, BID
     Route: 048

REACTIONS (3)
  - Febrile bone marrow aplasia [Recovered/Resolved]
  - Granuloma [Unknown]
  - Tuberculosis [Unknown]
